FAERS Safety Report 23433500 (Version 1)
Quarter: 2024Q1

REPORT INFORMATION
  Report Type: Report from Study
  Country: VN (occurrence: VN)
  Receive Date: 20240123
  Receipt Date: 20240123
  Transmission Date: 20240409
  Serious: Yes (Hospitalization)
  Sender: FDA-Public Use
  Company Number: VN-TAKEDA-2024TUS005172

PATIENT
  Age: 32 Year
  Sex: Female

DRUGS (1)
  1. BRENTUXIMAB VEDOTIN [Suspect]
     Active Substance: BRENTUXIMAB VEDOTIN
     Indication: Hodgkin^s disease refractory
     Dosage: 72 MILLIGRAM
     Route: 042
     Dates: start: 20231027

REACTIONS (6)
  - Pruritus [Recovered/Resolved]
  - Urticaria [Recovered/Resolved]
  - Ocular hyperaemia [Unknown]
  - Dyspnoea [Unknown]
  - Heart rate increased [Unknown]
  - Oxygen saturation decreased [Unknown]

NARRATIVE: CASE EVENT DATE: 20231213
